FAERS Safety Report 10519600 (Version 1)
Quarter: 2014Q4

REPORT INFORMATION
  Report Type: Spontaneous
  Country: CA (occurrence: CA)
  Receive Date: 20141015
  Receipt Date: 20141015
  Transmission Date: 20150528
  Serious: Yes (Other)
  Sender: FDA-Public Use
  Company Number: CA-ROXANE LABORATORIES, INC.-2014-BI-48172GD

PATIENT
  Age: 15 Year
  Sex: Male

DRUGS (3)
  1. RITUXIMAB [Suspect]
     Active Substance: RITUXIMAB
     Indication: ENCEPHALITIS AUTOIMMUNE
     Dosage: 2 DOSES OF 500 MG/ME2, 2 WEEKS APART
     Route: 065
  2. PREDNISONE. [Suspect]
     Active Substance: PREDNISONE
     Indication: ENCEPHALITIS AUTOIMMUNE
     Dosage: STARTED ON 2 MG/KG ( MAX 70 MG) WITH A TAPER EVERY 2ND WEEK
     Route: 048
  3. IMMUNOGLOBULINS [Suspect]
     Active Substance: HUMAN IMMUNOGLOBULIN G
     Indication: ENCEPHALITIS AUTOIMMUNE
     Route: 042

REACTIONS (4)
  - No therapeutic response [None]
  - Suicidal ideation [Unknown]
  - Anxiety [Unknown]
  - Depressed mood [Unknown]
